FAERS Safety Report 8423281-6 (Version None)
Quarter: 2012Q2

REPORT INFORMATION
  Report Type: 
  Country: None (occurrence: None)
  Receive Date: 20120608
  Receipt Date: 20120531
  Transmission Date: 20120825
  Serious: Yes (Hospitalization)
  Sender: FDA-Public Use
  Company Number: JP-AMGEN-JPNCT2012035633

PATIENT
  Age: 64 Year
  Sex: Female
  Weight: 48 kg

DRUGS (16)
  1. FAMOTIDINE [Concomitant]
     Dosage: UNK
     Route: 048
  2. PANITUMUMAB [Suspect]
     Dosage: 300 MG, UNK
     Route: 041
     Dates: start: 20120111
  3. IRINOTECAN HYDROCHLORIDE [Concomitant]
     Indication: COLORECTAL CANCER
     Route: 041
     Dates: start: 20111201
  4. FLUOROURACIL [Concomitant]
     Indication: COLORECTAL CANCER
     Route: 040
     Dates: start: 20111201
  5. LYRICA [Concomitant]
     Dosage: UNK
     Route: 048
  6. PROMACTA [Concomitant]
     Dosage: UNK
     Route: 048
  7. ALLEGRA [Concomitant]
     Dosage: UNK
     Route: 048
  8. CLARITHROMYCIN [Concomitant]
     Dosage: UNK
     Route: 048
  9. PREDNISOLONE [Concomitant]
     Dosage: UNK
     Route: 048
  10. HIRUDOID [Concomitant]
     Dosage: UNK
     Route: 062
  11. KYTRIL [Concomitant]
     Dosage: UNK
     Route: 048
  12. ANTEBATE [Concomitant]
     Dosage: UNK
     Route: 062
  13. PANITUMUMAB [Suspect]
     Indication: COLORECTAL CANCER
     Dosage: 300 MG, UNK
     Route: 041
     Dates: start: 20111201, end: 20111201
  14. LEUCOVORIN CALCIUM [Concomitant]
     Indication: COLORECTAL CANCER
     Route: 041
     Dates: start: 20111201
  15. FLUOROURACIL [Concomitant]
     Route: 041
     Dates: start: 20111201
  16. LOXONIN [Concomitant]
     Dosage: UNK
     Route: 048

REACTIONS (6)
  - DECREASED APPETITE [None]
  - FEELING HOT [None]
  - PAIN OF SKIN [None]
  - NAUSEA [None]
  - BACK PAIN [None]
  - RASH [None]
